FAERS Safety Report 6895295-9 (Version None)
Quarter: 2010Q3

REPORT INFORMATION
  Report Type: 
  Country: None (occurrence: None)
  Receive Date: 20100802
  Receipt Date: 20100726
  Transmission Date: 20110219
  Serious: Yes (Disabling, Other)
  Sender: FDA-Public Use
  Company Number: US-SANOFI-AVENTIS-2010SA043594

PATIENT
  Age: 58 Year
  Sex: Female

DRUGS (3)
  1. LANTUS [Suspect]
     Dosage: DOSE:77 UNIT(S)
     Route: 058
  2. OPTICLICK [Suspect]
  3. AVANDIA [Concomitant]

REACTIONS (3)
  - PARALYSIS [None]
  - SCIATIC NERVE INJURY [None]
  - SPINAL OSTEOARTHRITIS [None]
